FAERS Safety Report 25190823 (Version 2)
Quarter: 2025Q2

REPORT INFORMATION
  Report Type: Report from Study
  Country: US (occurrence: US)
  Receive Date: 20250411
  Receipt Date: 20250518
  Transmission Date: 20250717
  Serious: Yes (Hospitalization, Other)
  Sender: ABBVIE
  Company Number: US-ABBVIE-6218678

PATIENT
  Age: 65 Year
  Sex: Female

DRUGS (2)
  1. HUMIRA [Suspect]
     Active Substance: ADALIMUMAB
     Indication: Rheumatoid arthritis
     Route: 058
     Dates: start: 20240405, end: 20250204
  2. HUMIRA [Suspect]
     Active Substance: ADALIMUMAB
     Route: 058
     Dates: start: 20250304

REACTIONS (9)
  - Meniscus injury [Not Recovered/Not Resolved]
  - Arthritis [Unknown]
  - Road traffic accident [Unknown]
  - Synovial cyst [Unknown]
  - Joint stiffness [Unknown]
  - Cyst [Unknown]
  - Joint instability [Not Recovered/Not Resolved]
  - Arthropathy [Unknown]
  - Influenza like illness [Not Recovered/Not Resolved]
